FAERS Safety Report 23055927 (Version 1)
Quarter: 2023Q4

REPORT INFORMATION
  Report Type: Spontaneous
  Country: US (occurrence: None)
  Receive Date: 20231011
  Receipt Date: 20231011
  Transmission Date: 20240110
  Serious: Yes (Life-Threatening, Hospitalization)
  Sender: FDA-Public Use
  Company Number: 2023A229567

PATIENT
  Age: 60 Year
  Sex: Male

DRUGS (5)
  1. TICAGRELOR [Suspect]
     Active Substance: TICAGRELOR
     Indication: Antiplatelet therapy
     Route: 048
  2. ASPIRIN [Concomitant]
     Active Substance: ASPIRIN
  3. VASOPRESSIN [Concomitant]
     Active Substance: VASOPRESSIN
  4. NOREPINEPHRINE [Concomitant]
     Active Substance: NOREPINEPHRINE
  5. MILRINONE [Concomitant]
     Active Substance: MILRINONE

REACTIONS (2)
  - Pulmonary haemorrhage [Recovering/Resolving]
  - Hypoxia [Unknown]
